FAERS Safety Report 4918876-8 (Version None)
Quarter: 2006Q1

REPORT INFORMATION
  Report Type: 
  Country: None (occurrence: None)
  Receive Date: 20060221
  Receipt Date: 20060221
  Transmission Date: 20060701
  Serious: Yes (Disabling)
  Sender: FDA-Public Use
  Company Number: None

PATIENT
  Age: 39 Year
  Sex: Female
  Weight: 62.5964 kg

DRUGS (2)
  1. GENTAMICIN [Suspect]
     Indication: DIZZINESS
     Dosage: OTIC     ( X 2 )
     Route: 001
     Dates: start: 20050201, end: 20050205
  2. GENTAMICIN [Suspect]
     Indication: MENIERE'S DISEASE
     Dosage: OTIC     ( X 2 )
     Route: 001
     Dates: start: 20050201, end: 20050205

REACTIONS (3)
  - DEAFNESS UNILATERAL [None]
  - EAR DISORDER [None]
  - POST PROCEDURAL COMPLICATION [None]
